FAERS Safety Report 5179468-1 (Version None)
Quarter: 2006Q4

REPORT INFORMATION
  Report Type: 
  Country: None (occurrence: None)
  Receive Date: 20061211
  Receipt Date: 20061123
  Transmission Date: 20070319
  Serious: Yes (Hospitalization)
  Sender: FDA-Public Use
  Company Number: MEDI-0005160

PATIENT
  Age: 17 Month

DRUGS (5)
  1. SYNAGIS [Suspect]
     Indication: ANTIVIRAL PROPHYLAXIS
     Dosage: 140 MG, INTRAMUSCULAR; SEE IMAGE
     Dates: start: 20051018, end: 20060214
  2. SYNAGIS [Suspect]
     Indication: ANTIVIRAL PROPHYLAXIS
     Dosage: 140 MG, INTRAMUSCULAR; SEE IMAGE
     Dates: start: 20051018
  3. SYNAGIS [Suspect]
     Indication: ANTIVIRAL PROPHYLAXIS
     Dosage: 140 MG, INTRAMUSCULAR; SEE IMAGE
     Dates: start: 20051115
  4. SYNAGIS [Suspect]
     Indication: ANTIVIRAL PROPHYLAXIS
     Dosage: 140 MG, INTRAMUSCULAR; SEE IMAGE
     Dates: start: 20051213
  5. SYNAGIS [Suspect]
     Indication: ANTIVIRAL PROPHYLAXIS
     Dosage: 140 MG, INTRAMUSCULAR; SEE IMAGE
     Dates: start: 20060117

REACTIONS (1)
  - ASTHMA [None]
